APPROVED DRUG PRODUCT: DESVENLAFAXINE SUCCINATE
Active Ingredient: DESVENLAFAXINE SUCCINATE
Strength: EQ 100MG BASE
Dosage Form/Route: TABLET, EXTENDED RELEASE;ORAL
Application: A204083 | Product #001 | TE Code: AB
Applicant: HIKMA PHARMACEUTICALS USA INC
Approved: Feb 16, 2016 | RLD: No | RS: No | Type: RX